FAERS Safety Report 9171526 (Version 1)
Quarter: 2013Q1

REPORT INFORMATION
  Report Type: Spontaneous
  Country: US (occurrence: US)
  Receive Date: 20130319
  Receipt Date: 20130319
  Transmission Date: 20140127
  Serious: Yes (Hospitalization)
  Sender: FDA-Public Use
  Company Number: US-GLAXOSMITHKLINE-A0815635A

PATIENT
  Age: 77 Year
  Sex: Male

DRUGS (3)
  1. AVANDIA [Suspect]
     Indication: DIABETES MELLITUS
     Dosage: 8MG PER DAY
     Route: 048
     Dates: start: 1999
  2. AVANDAMET [Suspect]
     Indication: DIABETES MELLITUS
     Dosage: 1TAB TWICE PER DAY
     Route: 048
     Dates: start: 200403
  3. NAPROXEN [Concomitant]
     Indication: ARTHRALGIA

REACTIONS (4)
  - Myocardial infarction [Not Recovered/Not Resolved]
  - Angina unstable [Unknown]
  - Acute coronary syndrome [Unknown]
  - Cardiac failure congestive [Unknown]
